FAERS Safety Report 12281455 (Version 2)
Quarter: 2016Q2

REPORT INFORMATION
  Report Type: Spontaneous
  Country: US (occurrence: US)
  Receive Date: 20160419
  Receipt Date: 20160517
  Transmission Date: 20160815
  Serious: Yes (Other)
  Sender: FDA-Public Use
  Company Number: US-WEST-WARD PHARMACEUTICALS CORP.-US-H14001-16-00606

PATIENT
  Age: 62 Year
  Sex: Male

DRUGS (2)
  1. INFUMORPH [Suspect]
     Active Substance: MORPHINE SULFATE
     Indication: BACK PAIN
  2. INFUMORPH [Suspect]
     Active Substance: MORPHINE SULFATE
     Indication: PAIN
     Route: 037

REACTIONS (3)
  - Malaise [Unknown]
  - Dyspnoea [Unknown]
  - Palpitations [Unknown]

NARRATIVE: CASE EVENT DATE: 20160112
